FAERS Safety Report 6869931-7 (Version None)
Quarter: 2010Q3

REPORT INFORMATION
  Report Type: 
  Country: None (occurrence: None)
  Receive Date: 20100722
  Receipt Date: 20080909
  Transmission Date: 20110219
  Serious: No
  Sender: FDA-Public Use
  Company Number: US-PFIZER INC-2008071610

PATIENT
  Sex: Female
  Weight: 58.97 kg

DRUGS (1)
  1. CHANTIX [Suspect]
     Indication: SMOKING CESSATION THERAPY
     Route: 048
     Dates: start: 20080823, end: 20080824

REACTIONS (3)
  - FATIGUE [None]
  - HYPOGLYCAEMIA [None]
  - TREMOR [None]
